FAERS Safety Report 8333916-4 (Version None)
Quarter: 2012Q2

REPORT INFORMATION
  Report Type: 
  Country: None (occurrence: None)
  Receive Date: 20120503
  Receipt Date: 20120425
  Transmission Date: 20120825
  Serious: Yes (Other)
  Sender: FDA-Public Use
  Company Number: US-ASTRAZENECA-2012SE27187

PATIENT
  Age: 58 Year
  Sex: Male

DRUGS (2)
  1. SEROQUEL [Suspect]
     Indication: DEPRESSION
     Route: 048
  2. CRESTOR [Suspect]
     Route: 048

REACTIONS (3)
  - DIABETES MELLITUS [None]
  - RENAL FAILURE ACUTE [None]
  - WEIGHT DECREASED [None]
